FAERS Safety Report 5335407-1 (Version None)
Quarter: 2007Q2

REPORT INFORMATION
  Report Type: 
  Country: None (occurrence: None)
  Receive Date: 20070522
  Receipt Date: 20070509
  Transmission Date: 20071010
  Serious: Yes (Life-Threatening, Hospitalization)
  Sender: FDA-Public Use
  Company Number: 156294USA

PATIENT
  Age: 41 Year
  Sex: Female

DRUGS (3)
  1. PIMOZIDE TABLETS (PIMOZIDE ) [Suspect]
     Dosage: ONE PACKAGE, ORAL
     Route: 048
  2. CLOMIPRAMINE HCL [Suspect]
     Dosage: OEN PACKAGE, ORAL
     Route: 048
  3. ALPRAZOLAM [Suspect]
     Dosage: ONE PACKAGE

REACTIONS (3)
  - COMA [None]
  - MULTIPLE DRUG OVERDOSE INTENTIONAL [None]
  - SUICIDE ATTEMPT [None]
